FAERS Safety Report 10362715 (Version 2)
Quarter: 2014Q3

REPORT INFORMATION
  Report Type: Spontaneous
  Country: CL (occurrence: CL)
  Receive Date: 20140805
  Receipt Date: 20140814
  Transmission Date: 20150326
  Serious: Yes (Other)
  Sender: FDA-Public Use
  Company Number: CL-PFIZER INC-2014215469

PATIENT
  Age: 34 Year
  Sex: Female

DRUGS (5)
  1. CEFTRIAXONE. [Concomitant]
     Active Substance: CEFTRIAXONE
     Dosage: 2 G, DAILY
  2. METRONIDAZOLE. [Suspect]
     Active Substance: METRONIDAZOLE
     Indication: LIVER ABSCESS
     Dosage: 73.5 G, (TOTAL ACCUMULATED DOSE)
  3. LINEZOLID. [Concomitant]
     Active Substance: LINEZOLID
     Dosage: 600 MG, 2X/DAY (EVERY 12 HOURS)
  4. CIPROFLOXACIN. [Concomitant]
     Active Substance: CIPROFLOXACIN
     Dosage: 750 MG, 2X/DAY (EVERY 12 HOURS)
  5. AMPICILLIN [Concomitant]
     Active Substance: AMPICILLIN
     Dosage: 1 G, 4X/DAY (EVERY 6 HOURS FOR 3 DAYS)

REACTIONS (4)
  - Neuropathy peripheral [Recovered/Resolved]
  - Polyneuropathy [Recovered/Resolved]
  - Cerebellar syndrome [Recovered/Resolved]
  - Neurotoxicity [Recovered/Resolved]
